FAERS Safety Report 9702207 (Version 5)
Quarter: 2015Q1

REPORT INFORMATION
  Report Type: Report from Study
  Country: BR (occurrence: BR)
  Receive Date: 20131121
  Receipt Date: 20150302
  Transmission Date: 20150721
  Serious: Yes (Hospitalization, Other)
  Sender: FDA-Public Use
  Company Number: BR-ROCHE-1284361

PATIENT
  Sex: Female
  Weight: 76 kg

DRUGS (10)
  1. FUROSEMIDE. [Concomitant]
     Active Substance: FUROSEMIDE
     Route: 065
  2. ENALAPRIL [Concomitant]
     Active Substance: ENALAPRIL
     Route: 065
  3. ACTEMRA [Suspect]
     Active Substance: TOCILIZUMAB
     Indication: RHEUMATOID ARTHRITIS
     Dosage: 200MG/10ML 1FAMP, LAST INFUSION WAS DONE IN JULY
     Route: 042
     Dates: start: 201209, end: 201307
  4. ARNICA [Concomitant]
     Route: 065
  5. TRYPTOPHAN [Concomitant]
     Active Substance: TRYPTOPHAN
     Route: 065
  6. CAPTOPRIL. [Concomitant]
     Active Substance: CAPTOPRIL
  7. DEFLAZACORT [Concomitant]
     Active Substance: DEFLAZACORT
     Route: 065
  8. FAMOTIDINE. [Concomitant]
     Active Substance: FAMOTIDINE
     Route: 065
  9. TOPIRAMATE. [Concomitant]
     Active Substance: TOPIRAMATE
     Route: 065
  10. POTASSIUM CHLORIDE. [Concomitant]
     Active Substance: POTASSIUM CHLORIDE
     Route: 065

REACTIONS (7)
  - Diverticulitis [Recovered/Resolved]
  - Pain [Not Recovered/Not Resolved]
  - Pulmonary mass [Recovered/Resolved]
  - Retinal disorder [Unknown]
  - Tuberculosis [Recovered/Resolved]
  - Haemorrhage [Unknown]
  - Joint effusion [Unknown]
